FAERS Safety Report 20421497 (Version 1)
Quarter: 2022Q1

REPORT INFORMATION
  Report Type: Spontaneous
  Country: FR (occurrence: FR)
  Receive Date: 20220203
  Receipt Date: 20220203
  Transmission Date: 20220423
  Serious: Yes (Life-Threatening)
  Sender: FDA-Public Use
  Company Number: FR-BoehringerIngelheim-2022-BI-151768

PATIENT
  Age: 3 Year
  Sex: Female

DRUGS (1)
  1. CLONIDINE [Suspect]
     Active Substance: CLONIDINE
     Indication: Analgesic intervention supportive therapy
     Dosage: 0.75 MG 1/1 TOTAL
     Route: 048
     Dates: start: 20220118

REACTIONS (4)
  - Incorrect dose administered [Recovered/Resolved]
  - Somnolence [Recovered/Resolved]
  - Off label use [Recovered/Resolved]
  - Off label use [Recovered/Resolved]

NARRATIVE: CASE EVENT DATE: 20220118
